FAERS Safety Report 4862696-X (Version None)
Quarter: 2005Q4

REPORT INFORMATION
  Report Type: 
  Country: None (occurrence: None)
  Receive Date: 20051221
  Receipt Date: 20050906
  Transmission Date: 20060501
  Serious: Yes (Death)
  Sender: FDA-Public Use
  Company Number: GB-MERCK-0509GBR00081

PATIENT
  Age: 58 Year
  Sex: Female

DRUGS (12)
  1. VIOXX [Suspect]
     Indication: OSTEOARTHRITIS
     Route: 048
     Dates: start: 19990801, end: 20030830
  2. VIOXX [Suspect]
     Route: 048
     Dates: start: 19990801, end: 20030830
  3. ESOMEPRAZOLE MAGNESIUM [Concomitant]
     Route: 065
     Dates: start: 20030515
  4. CLEMIZOLE UNDECANOATE AND DIBUCAINE HYDROCHLORIDE AND PREDNISOLONE HEX [Concomitant]
     Route: 065
     Dates: start: 20030515
  5. NIFEDIPINE [Concomitant]
     Route: 065
     Dates: start: 19990126
  6. ATENOLOL [Concomitant]
     Route: 065
     Dates: start: 19990126
  7. AMILORIDE HYDROCHLORIDE AND FUROSEMIDE [Concomitant]
     Route: 065
     Dates: start: 19990126
  8. FUSIDATE SODIUM AND HYDROCORTISONE ACETATE [Concomitant]
     Route: 065
  9. CETIRIZINE HYDROCHLORIDE [Concomitant]
     Route: 065
  10. AMOXICILLIN [Concomitant]
     Route: 065
  11. CLARITHROMYCIN [Concomitant]
     Route: 065
  12. COZAAR [Concomitant]
     Route: 048
     Dates: start: 20030701

REACTIONS (7)
  - ACUTE MYOCARDIAL INFARCTION [None]
  - BRONCHITIS [None]
  - HELICOBACTER INFECTION [None]
  - MYOCARDIAL ISCHAEMIA [None]
  - OEDEMA MOUTH [None]
  - OESOPHAGITIS [None]
  - REFLUX OESOPHAGITIS [None]
